FAERS Safety Report 21259813 (Version 7)
Quarter: 2023Q4

REPORT INFORMATION
  Report Type: Report from Study
  Country: US (occurrence: US)
  Receive Date: 20220826
  Receipt Date: 20231222
  Transmission Date: 20240110
  Serious: No
  Sender: FDA-Public Use
  Company Number: US-NOVARTISTESTPH-NVSC2022US185320

PATIENT
  Age: 26 Year
  Sex: Female

DRUGS (3)
  1. KESIMPTA [Suspect]
     Active Substance: OFATUMUMAB
     Indication: Multiple sclerosis
     Dosage: 20 MG
     Route: 058
     Dates: start: 20220809
  2. MELATONIN [Concomitant]
     Active Substance: MELATONIN
     Indication: Product used for unknown indication
     Dosage: UNK
     Route: 065
  3. VITAMIN D [Concomitant]
     Active Substance: VITAMIN D NOS
     Indication: Product used for unknown indication
     Dosage: UNK
     Route: 065

REACTIONS (13)
  - Muscle spasms [Unknown]
  - Emotional disorder [Unknown]
  - Asthenia [Unknown]
  - Pain of skin [Unknown]
  - Speech disorder [Unknown]
  - Sensitive skin [Unknown]
  - Headache [Unknown]
  - Chills [Unknown]
  - Pyrexia [Unknown]
  - Pain [Unknown]
  - Hypoaesthesia [Unknown]
  - Back pain [Unknown]
  - Inappropriate schedule of product administration [Unknown]

NARRATIVE: CASE EVENT DATE: 20220809
